FAERS Safety Report 14144201 (Version 2)
Quarter: 2017Q4

REPORT INFORMATION
  Report Type: Spontaneous
  Country: FI (occurrence: FI)
  Receive Date: 20171031
  Receipt Date: 20171208
  Transmission Date: 20180321
  Serious: Yes (Death)
  Sender: FDA-Public Use
  Company Number: FI-ASTRAZENECA-2017SF09142

PATIENT
  Sex: Male
  Weight: 95 kg

DRUGS (12)
  1. METFOREM [Suspect]
     Active Substance: METFORMIN HYDROCHLORIDE
     Dosage: 750 MG, THREE TIMES A DAY, NON-AZ PRODUCT
     Route: 065
  2. ORLOC [Concomitant]
     Active Substance: BISOPROLOL FUMARATE
  3. ATORVASTATIN [Concomitant]
     Active Substance: ATORVASTATIN
  4. SERETIDE [Concomitant]
     Active Substance: FLUTICASONE PROPIONATE\SALMETEROL XINAFOATE
  5. NOVORAPID [Suspect]
     Active Substance: INSULIN ASPART
     Dosage: 6-8 UNITS / MEAL
     Route: 065
  6. HYDREA [Concomitant]
     Active Substance: HYDROXYUREA
  7. LEVEMIR [Suspect]
     Active Substance: INSULIN DETEMIR
     Dosage: 87 UNITS IN THE EVENING
     Route: 065
  8. LEVEMIR [Suspect]
     Active Substance: INSULIN DETEMIR
     Dosage: 60 IU
     Route: 065
  9. ADALAT [Concomitant]
     Active Substance: NIFEDIPINE
  10. MIRTAZAPINE. [Concomitant]
     Active Substance: MIRTAZAPINE
  11. FORXIGA [Suspect]
     Active Substance: DAPAGLIFLOZIN
     Route: 048
  12. SPIRIVA [Concomitant]
     Active Substance: TIOTROPIUM BROMIDE MONOHYDRATE

REACTIONS (1)
  - Hyperglycaemia [Fatal]
